FAERS Safety Report 8394294-8 (Version None)
Quarter: 2012Q2

REPORT INFORMATION
  Report Type: 
  Country: None (occurrence: None)
  Receive Date: 20120530
  Receipt Date: 20120525
  Transmission Date: 20120825
  Serious: No
  Sender: FDA-Public Use
  Company Number: US-BAYER-2012-032169

PATIENT
  Age: 27 Year
  Sex: Female
  Weight: 66.667 kg

DRUGS (1)
  1. MIRENA [Suspect]
     Indication: CONTRACEPTION
     Dosage: 20 MCG/24HR, CONT
     Route: 015
     Dates: start: 20100801

REACTIONS (2)
  - MENORRHAGIA [None]
  - PREGNANCY WITH CONTRACEPTIVE DEVICE [None]
